FAERS Safety Report 5382078-4 (Version None)
Quarter: 2007Q2

REPORT INFORMATION
  Report Type: 
  Country: None (occurrence: None)
  Receive Date: 20070629
  Receipt Date: 20070412
  Transmission Date: 20071010
  Serious: Yes (Other)
  Sender: FDA-Public Use
  Company Number: PHEH2007US05288

PATIENT
  Age: 12 Year
  Sex: Female

DRUGS (3)
  1. EXJADE [Suspect]
     Indication: IRON OVERLOAD
     Dosage: 1000 MG, QD, ORAL : 500 MG, QD, ORAL : 250 MG, QD, ORAL
     Route: 048
     Dates: start: 20061122, end: 20061205
  2. EXJADE [Suspect]
     Indication: IRON OVERLOAD
     Dosage: 1000 MG, QD, ORAL : 500 MG, QD, ORAL : 250 MG, QD, ORAL
     Route: 048
     Dates: start: 20061207, end: 20061220
  3. EXJADE [Suspect]
     Indication: IRON OVERLOAD
     Dosage: 1000 MG, QD, ORAL : 500 MG, QD, ORAL : 250 MG, QD, ORAL
     Route: 048
     Dates: start: 20061221

REACTIONS (3)
  - ANOREXIA [None]
  - LETHARGY [None]
  - NAUSEA [None]
